FAERS Safety Report 21637444 (Version 2)
Quarter: 2023Q1

REPORT INFORMATION
  Report Type: Report from Study
  Country: US (occurrence: US)
  Receive Date: 20221124
  Receipt Date: 20230130
  Transmission Date: 20230417
  Serious: No
  Sender: FDA-Public Use
  Company Number: US-ABBVIE-4173957

PATIENT
  Sex: Female

DRUGS (3)
  1. HUMIRA [Suspect]
     Active Substance: ADALIMUMAB
     Indication: Rheumatoid arthritis
     Route: 058
  2. HUMIRA [Suspect]
     Active Substance: ADALIMUMAB
     Route: 058
     Dates: start: 20141218
  3. COVID-19 VACCINE NOS [Suspect]
     Active Substance: COVID-19 VACCINE NOS
     Indication: COVID-19 immunisation
     Dosage: BOOSTER DOSE

REACTIONS (7)
  - Sneezing [Recovering/Resolving]
  - Limb mass [Unknown]
  - Sinusitis [Recovering/Resolving]
  - Nasal crusting [Unknown]
  - Cough [Recovering/Resolving]
  - Neck mass [Unknown]
  - Erythema [Unknown]
